FAERS Safety Report 8265761-2 (Version None)
Quarter: 2012Q2

REPORT INFORMATION
  Report Type: 
  Country: None (occurrence: None)
  Receive Date: 20120406
  Receipt Date: 20120323
  Transmission Date: 20120825
  Serious: Yes (Other)
  Sender: FDA-Public Use
  Company Number: FR-ROCHE-1052483

PATIENT
  Sex: Female

DRUGS (1)
  1. CLONAZEPAM [Suspect]
     Indication: PRODUCT USED FOR UNKNOWN INDICATION

REACTIONS (6)
  - MOTOR DYSFUNCTION [None]
  - DISTURBANCE IN ATTENTION [None]
  - ANAL SPHINCTER ATONY [None]
  - URINARY TRACT INFECTION [None]
  - BLADDER SPHINCTER ATONY [None]
  - MEMORY IMPAIRMENT [None]
